FAERS Safety Report 19403106 (Version 2)
Quarter: 2021Q3

REPORT INFORMATION
  Report Type: Spontaneous
  Country: DE (occurrence: DE)
  Receive Date: 20210610
  Receipt Date: 20210819
  Transmission Date: 20211014
  Serious: Yes (Other)
  Sender: FDA-Public Use
  Company Number: NVSC2021DE126998

PATIENT
  Sex: Female
  Weight: 80 kg

DRUGS (2)
  1. MAYZENT [Suspect]
     Active Substance: SIPONIMOD
     Indication: SECONDARY PROGRESSIVE MULTIPLE SCLEROSIS
     Dosage: 2 MG, QD
     Route: 048
     Dates: start: 202002, end: 20210721
  2. MAYZENT [Suspect]
     Active Substance: SIPONIMOD
     Dosage: 1 MG, QD
     Route: 048
     Dates: start: 20210722

REACTIONS (1)
  - Lymphocyte count decreased [Not Recovered/Not Resolved]

NARRATIVE: CASE EVENT DATE: 20210601
